FAERS Safety Report 10423908 (Version 2)
Quarter: 2015Q1

REPORT INFORMATION
  Report Type: Spontaneous
  Country: US (occurrence: None)
  Receive Date: 20140722
  Receipt Date: 20150120
  Transmission Date: 20150720
  Serious: No
  Sender: FDA-Public Use
  Company Number: AEGR000494

PATIENT
  Age: 67 Year
  Sex: Female
  Weight: 88.4 kg

DRUGS (1)
  1. JUXTAPID [Suspect]
     Active Substance: LOMITAPIDE MESYLATE
     Indication: PRODUCT USED FOR UNKNOWN INDICATION
     Dates: start: 2014, end: 2014

REACTIONS (3)
  - Malaise [None]
  - Product used for unknown indication [None]
  - Nausea [None]

NARRATIVE: CASE EVENT DATE: 20140130
